FAERS Safety Report 4322968-4 (Version None)
Quarter: 2004Q1

REPORT INFORMATION
  Report Type: 
  Country: None (occurrence: None)
  Receive Date: 20040325
  Receipt Date: 20040317
  Transmission Date: 20041129
  Serious: Yes (Other)
  Sender: FDA-Public Use
  Company Number: PHBS2004BR03713

PATIENT
  Sex: Male
  Weight: 84 kg

DRUGS (2)
  1. GLEEVEC [Suspect]
     Indication: LEUKAEMIA
     Dosage: 600 MG/D
     Route: 048
     Dates: start: 20030802
  2. GLEEVEC [Suspect]
     Dosage: 400 MG/D
     Route: 048
     Dates: start: 20031001

REACTIONS (2)
  - ARTHRALGIA [None]
  - ARTHRITIS [None]
